FAERS Safety Report 5208420-2 (Version None)
Quarter: 2006Q4

REPORT INFORMATION
  Report Type: 
  Country: None (occurrence: None)
  Receive Date: 20061027
  Receipt Date: 20060302
  Transmission Date: 20070319
  Serious: Yes (Hospitalization, Other)
  Sender: FDA-Public Use
  Company Number: HQWYE930016AUG05

PATIENT
  Age: 51 Year
  Sex: Female
  Weight: 65.83 kg

DRUGS (3)
  1. PREMARIN [Suspect]
     Indication: MENOPAUSE
  2. CLIMARA [Suspect]
     Indication: MENOPAUSE
  3. ESTROGENIC SUBSTANCE [Suspect]

REACTIONS (1)
  - BREAST CANCER [None]
